FAERS Safety Report 17887960 (Version 2)
Quarter: 2020Q3

REPORT INFORMATION
  Report Type: Spontaneous
  Country: US (occurrence: US)
  Receive Date: 20200612
  Receipt Date: 20200724
  Transmission Date: 20201103
  Serious: No
  Sender: FDA-Public Use
  Company Number: US-GLAXOSMITHKLINE-US2020AMR098662

PATIENT
  Sex: Female

DRUGS (1)
  1. ZEJULA [Suspect]
     Active Substance: NIRAPARIB
     Indication: GENITAL NEOPLASM MALIGNANT FEMALE
     Dosage: 200 MG, QD AT NIGHT WITHOUT FOOD
     Dates: start: 20200514

REACTIONS (4)
  - Insomnia [Unknown]
  - Photosensitivity reaction [Unknown]
  - Hot flush [Unknown]
  - Arthralgia [Unknown]
